FAERS Safety Report 5187722-2 (Version None)
Quarter: 2006Q4

REPORT INFORMATION
  Report Type: 
  Country: None (occurrence: None)
  Receive Date: 20061214
  Receipt Date: 20061204
  Transmission Date: 20070319
  Serious: Yes (Other)
  Sender: FDA-Public Use
  Company Number: 2006AL003787

PATIENT
  Age: 6 Month
  Sex: Female

DRUGS (1)
  1. METOCLOPRAMIDE [Suspect]

REACTIONS (8)
  - ACIDOSIS [None]
  - CYANOSIS [None]
  - HYPERTONIA [None]
  - HYPOTENSION [None]
  - HYPOXIA [None]
  - IRRITABILITY [None]
  - NEUROLEPTIC MALIGNANT SYNDROME [None]
  - TACHYCARDIA [None]
